FAERS Safety Report 9391737 (Version 1)
Quarter: 2013Q3

REPORT INFORMATION
  Report Type: Spontaneous
  Country: GB (occurrence: GB)
  Receive Date: 20130709
  Receipt Date: 20130709
  Transmission Date: 20140515
  Serious: Yes (Other)
  Sender: FDA-Public Use
  Company Number: GB-TEVA-416548ISR

PATIENT
  Age: 44 Year
  Sex: Female
  Weight: 66 kg

DRUGS (9)
  1. TRIMETHOPRIM [Suspect]
     Dates: start: 20130531
  2. ADCAL [Concomitant]
     Dates: start: 20130408, end: 20130603
  3. LANSOPRAZOLE [Concomitant]
     Dates: start: 20130408, end: 20130603
  4. FYBOGEL [Concomitant]
     Dates: start: 20130528, end: 20130612
  5. HYDROCORTISONE [Concomitant]
     Dates: start: 20130528, end: 20130604
  6. PARACETAMOL [Concomitant]
     Dates: start: 20130528, end: 20130609
  7. NYSTAN [Concomitant]
     Dates: start: 20130610, end: 20130617
  8. CETIRIZINE [Concomitant]
     Dates: start: 20130610
  9. FOLIC ACID [Concomitant]
     Dates: start: 20130611

REACTIONS (5)
  - Rash [Recovering/Resolving]
  - Mouth ulceration [Recovering/Resolving]
  - Oral candidiasis [Unknown]
  - Arthralgia [Unknown]
  - Drug eruption [Unknown]
